FAERS Safety Report 19421784 (Version 2)
Quarter: 2021Q3

REPORT INFORMATION
  Report Type: Spontaneous
  Country: US (occurrence: US)
  Receive Date: 20210615
  Receipt Date: 20210925
  Transmission Date: 20211014
  Serious: No
  Sender: FDA-Public Use
  Company Number: US-SA-2021SA196632

PATIENT
  Age: 36 Year
  Sex: Female

DRUGS (3)
  1. DUPIXENT [Suspect]
     Active Substance: DUPILUMAB
     Indication: ASTHMA
     Dosage: 200 MG, QOW
     Route: 058
  2. DUPIXENT [Suspect]
     Active Substance: DUPILUMAB
     Indication: RHINITIS ALLERGIC
  3. DUPIXENT [Suspect]
     Active Substance: DUPILUMAB
     Indication: CHRONIC SINUSITIS

REACTIONS (4)
  - Painful respiration [Unknown]
  - Oropharyngeal pain [Unknown]
  - Product use in unapproved indication [Unknown]
  - Asthma [Unknown]

NARRATIVE: CASE EVENT DATE: 20210603
